FAERS Safety Report 7792583-9 (Version None)
Quarter: 2011Q4

REPORT INFORMATION
  Report Type: 
  Country: None (occurrence: None)
  Receive Date: 20111003
  Receipt Date: 20110920
  Transmission Date: 20120403
  Serious: Yes (Hospitalization)
  Sender: FDA-Public Use
  Company Number: US-BAYER-2011-020089

PATIENT
  Age: 48 Year
  Sex: Female
  Weight: 78 kg

DRUGS (6)
  1. UNITHROID [Concomitant]
     Dosage: 0.112 MG, UNK
     Route: 048
  2. MOTRIN [Concomitant]
     Indication: MUSCLE SPASMS
     Dosage: UNK UNK, PRN
     Route: 048
  3. YASMIN [Suspect]
     Indication: MENSTRUATION IRREGULAR
     Dosage: UNK
     Dates: start: 20040501, end: 20040816
  4. XANAX [Concomitant]
     Indication: ANXIETY
     Dosage: 0.25 MG, PRN
     Route: 048
  5. YASMIN [Suspect]
     Indication: MENOPAUSAL SYMPTOMS
  6. PROTONIX [Concomitant]
     Dosage: 40 MG, UNK
     Route: 048

REACTIONS (4)
  - ANXIETY [None]
  - MESENTERIC ARTERY THROMBOSIS [None]
  - MESENTERIC VEIN THROMBOSIS [None]
  - PAIN [None]
